FAERS Safety Report 7026433-5 (Version None)
Quarter: 2010Q3

REPORT INFORMATION
  Report Type: 
  Country: None (occurrence: None)
  Receive Date: 20100929
  Receipt Date: 20100914
  Transmission Date: 20110219
  Serious: Yes (Death)
  Sender: FDA-Public Use
  Company Number: AUR-APL-2010-02244

PATIENT
  Sex: 0

DRUGS (1)
  1. METFORMIN AUROBINDO FILM-COATED TABLET [Suspect]
     Indication: POLYCYSTIC OVARIES
     Dosage: 500MG TID TRANSPLACENT
     Route: 064

REACTIONS (2)
  - INTRA-UTERINE DEATH [None]
  - MATERNAL DRUGS AFFECTING FOETUS [None]
